FAERS Safety Report 16798278 (Version 2)
Quarter: 2020Q4

REPORT INFORMATION
  Report Type: Spontaneous
  Country: US (occurrence: US)
  Receive Date: 20190912
  Receipt Date: 20201021
  Transmission Date: 20210113
  Serious: Yes (Death, Life-Threatening, Hospitalization, Other)
  Sender: FDA-Public Use
  Company Number: US-SUN PHARMACEUTICAL INDUSTRIES LTD-2019R1-219913

PATIENT
  Age: 32 Year
  Sex: Female

DRUGS (1)
  1. ACETAMINOPHEN. [Suspect]
     Active Substance: ACETAMINOPHEN
     Indication: PRODUCT USED FOR UNKNOWN INDICATION
     Dosage: 187.5 G
     Route: 065

REACTIONS (12)
  - Hypotension [Unknown]
  - Intentional overdose [Unknown]
  - Coagulopathy [Unknown]
  - Transaminases increased [Unknown]
  - Mental status changes [Unknown]
  - Arrhythmia supraventricular [Unknown]
  - Hepatic encephalopathy [Unknown]
  - Cardiac arrest [Unknown]
  - Lethargy [Unknown]
  - Analgesic drug level increased [Unknown]
  - Acute hepatic failure [Fatal]
  - Metabolic acidosis [Unknown]
